FAERS Safety Report 15891838 (Version 1)
Quarter: 2019Q1

REPORT INFORMATION
  Report Type: Spontaneous
  Country: US (occurrence: US)
  Receive Date: 20190130
  Receipt Date: 20190130
  Transmission Date: 20190417
  Serious: No
  Sender: FDA-Public Use
  Company Number: US-KVK-TECH, INC-2061950

PATIENT
  Age: 49 Year
  Sex: Female

DRUGS (1)
  1. PHENDIMETRAZINE TARTRATE. [Suspect]
     Active Substance: PHENDIMETRAZINE TARTRATE
     Indication: WEIGHT INCREASED
     Route: 048
     Dates: start: 201812, end: 201812

REACTIONS (4)
  - Dyspnoea [Recovered/Resolved]
  - Asthenopia [Recovered/Resolved]
  - Influenza [Recovered/Resolved]
  - Poisoning [Recovered/Resolved]

NARRATIVE: CASE EVENT DATE: 201812
